FAERS Safety Report 15408230 (Version 1)
Quarter: 2018Q3

REPORT INFORMATION
  Report Type: Spontaneous
  Country: US (occurrence: US)
  Receive Date: 20180920
  Receipt Date: 20180920
  Transmission Date: 20181010
  Serious: No
  Sender: FDA-Public Use
  Company Number: US-PERRIGO-18US004527

PATIENT
  Age: 31 Year
  Sex: Female
  Weight: 63.49 kg

DRUGS (1)
  1. LEVONORGESTREL. [Suspect]
     Active Substance: LEVONORGESTREL
     Indication: CONTRACEPTION
     Dosage: 1.5 MG, SINGLE
     Route: 048
     Dates: start: 20180415, end: 20180415

REACTIONS (1)
  - Metrorrhagia [Recovered/Resolved]

NARRATIVE: CASE EVENT DATE: 20180420
